FAERS Safety Report 24716255 (Version 1)
Quarter: 2024Q4

REPORT INFORMATION
  Report Type: Other
  Country: CA (occurrence: CA)
  Receive Date: 20241210
  Receipt Date: 20241210
  Transmission Date: 20250115
  Serious: Yes (Other)
  Sender: APOTEX
  Company Number: CA-APOTEX-2024AP019289

PATIENT
  Age: 80 Year
  Sex: Male
  Weight: 82 kg

DRUGS (1)
  1. METFORMIN [Suspect]
     Active Substance: METFORMIN HYDROCHLORIDE
     Indication: Diabetes mellitus
     Dosage: 500 MILLIGRAM, BID
     Route: 048

REACTIONS (3)
  - Diabetes mellitus inadequate control [Unknown]
  - Abdominal pain [Unknown]
  - Diarrhoea [Unknown]
